FAERS Safety Report 15103420 (Version 4)
Quarter: 2020Q4

REPORT INFORMATION
  Report Type: Spontaneous
  Country: GB (occurrence: GB)
  Receive Date: 20180703
  Receipt Date: 20201119
  Transmission Date: 20210113
  Serious: Yes (Other)
  Sender: FDA-Public Use
  Company Number: GB-JNJFOC-20180638969

PATIENT
  Age: 34 Year
  Sex: Female
  Weight: 90 kg

DRUGS (5)
  1. MESALAZINE [Concomitant]
     Active Substance: MESALAMINE
     Indication: CROHN^S DISEASE
     Route: 048
     Dates: start: 200506, end: 2006
  2. STELARA [Suspect]
     Active Substance: USTEKINUMAB
     Route: 058
     Dates: end: 20180202
  3. STELARA [Suspect]
     Active Substance: USTEKINUMAB
     Indication: CROHN^S DISEASE
     Route: 058
     Dates: start: 20171003, end: 20171003
  4. MESALAZINE [Concomitant]
     Active Substance: MESALAMINE
     Route: 048
  5. AZATHIOPRINE. [Concomitant]
     Active Substance: AZATHIOPRINE
     Indication: CROHN^S DISEASE
     Route: 048
     Dates: start: 200507

REACTIONS (2)
  - Treatment failure [Unknown]
  - Crohn^s disease [Unknown]
